FAERS Safety Report 11781435 (Version 1)
Quarter: 2015Q4

REPORT INFORMATION
  Report Type: Spontaneous
  Country: US (occurrence: US)
  Receive Date: 20151126
  Receipt Date: 20151126
  Transmission Date: 20160305
  Serious: Yes (Other)
  Sender: FDA-Public Use
  Company Number: US-ELI_LILLY_AND_COMPANY-US201511007942

PATIENT
  Sex: Female
  Weight: 90.7 kg

DRUGS (1)
  1. HUMALOG [Suspect]
     Active Substance: INSULIN LISPRO
     Indication: PRODUCT USED FOR UNKNOWN INDICATION
     Route: 042

REACTIONS (6)
  - Cardiac disorder [Unknown]
  - Visual impairment [Unknown]
  - Asthenia [Unknown]
  - Peripheral swelling [Unknown]
  - Blood glucose increased [Unknown]
  - Renal impairment [Unknown]
